FAERS Safety Report 17572731 (Version 2)
Quarter: 2020Q1

REPORT INFORMATION
  Report Type: Spontaneous
  Country: US (occurrence: US)
  Receive Date: 20200323
  Receipt Date: 20200327
  Transmission Date: 20200409
  Serious: No
  Sender: FDA-Public Use
  Company Number: US-PFIZER INC-2020123203

PATIENT
  Age: 65 Year
  Sex: Female

DRUGS (1)
  1. CELEBREX [Suspect]
     Active Substance: CELECOXIB
     Dosage: 200 MG, UNK  (QUANTITY: 60, DAY SUPPLY: 30)

REACTIONS (2)
  - Lip swelling [Unknown]
  - Stomatitis [Unknown]
